FAERS Safety Report 16690092 (Version 1)
Quarter: 2019Q3

REPORT INFORMATION
  Report Type: Spontaneous
  Country: BR (occurrence: BR)
  Receive Date: 20190809
  Receipt Date: 20190809
  Transmission Date: 20191004
  Serious: Yes (Other)
  Sender: FDA-Public Use
  Company Number: BR-NOVOPROD-677258

PATIENT
  Sex: Male
  Weight: 90 kg

DRUGS (2)
  1. NOVORAPID [Suspect]
     Active Substance: INSULIN ASPART
     Indication: TYPE 1 DIABETES MELLITUS
     Dosage: 26 IU, QD (6U IN THE MORNING, 10U IN THE AFTERNOON AND 10U AT THE NIGHT)
     Route: 065
  2. LEVEMIR [Suspect]
     Active Substance: INSULIN DETEMIR
     Indication: TYPE 1 DIABETES MELLITUS
     Dosage: 110 IU, QD (60 IU IN THE MORNING AND 50 IU AT NIGHT)
     Route: 065

REACTIONS (4)
  - Product storage error [Unknown]
  - Coma [Unknown]
  - Pain [Unknown]
  - Headache [Unknown]
